FAERS Safety Report 7691948-3 (Version None)
Quarter: 2011Q3

REPORT INFORMATION
  Report Type: 
  Country: None (occurrence: None)
  Receive Date: 20110818
  Receipt Date: 20110813
  Transmission Date: 20111222
  Serious: Yes (Other)
  Sender: FDA-Public Use
  Company Number: US-ABBOTT-11P-163-0846473-00

PATIENT
  Sex: Female
  Weight: 42.222 kg

DRUGS (5)
  1. HUMIRA [Suspect]
     Dates: start: 20100601
  2. HUMIRA [Suspect]
     Indication: CROHN'S DISEASE
     Dates: start: 20070601, end: 20070901
  3. UNKNOWN MEDICATIONS [Concomitant]
     Indication: PRODUCT USED FOR UNKNOWN INDICATION
  4. HUMIRA [Suspect]
     Dates: start: 20070901, end: 20080101
  5. HUMIRA [Suspect]
     Dates: start: 20080201, end: 20100501

REACTIONS (8)
  - FISTULA [None]
  - CROHN'S DISEASE [None]
  - PHARYNGEAL OEDEMA [None]
  - EPSTEIN-BARR VIRUS TEST POSITIVE [None]
  - PYREXIA [None]
  - INFECTIOUS MONONUCLEOSIS [None]
  - OROPHARYNGEAL PAIN [None]
  - ORAL MUCOSAL DISCOLOURATION [None]
